FAERS Safety Report 12968890 (Version 1)
Quarter: 2016Q4

REPORT INFORMATION
  Report Type: Spontaneous
  Country: FR (occurrence: FR)
  Receive Date: 20161123
  Receipt Date: 20161123
  Transmission Date: 20170207
  Serious: Yes (Other)
  Sender: FDA-Public Use
  Company Number: FR-UCBSA-2015016572

PATIENT
  Age: 24 Year
  Sex: Female
  Weight: 53 kg

DRUGS (4)
  1. VIMPAT [Suspect]
     Active Substance: LACOSAMIDE
     Dosage: 400MG/DAY
     Route: 048
     Dates: start: 201509
  2. VIMPAT [Suspect]
     Active Substance: LACOSAMIDE
     Indication: EPILEPSY
     Dosage: 350MG/DAY
     Route: 048
     Dates: start: 20130627, end: 201509
  3. URBANYL [Concomitant]
     Active Substance: CLOBAZAM
     Indication: EPILEPSY
     Dosage: 1 DF, ONCE DAILY (QD)
     Route: 048
     Dates: start: 201509, end: 201510
  4. SPECIAFOLDINE [Concomitant]
     Active Substance: FOLIC ACID
     Indication: PRODUCT USED FOR UNKNOWN INDICATION
     Dosage: 1 DF, ONCE DAILY (QD)
     Route: 048
     Dates: start: 20150519, end: 201509

REACTIONS (3)
  - Seizure [Recovered/Resolved]
  - Partial seizures [Recovered/Resolved]
  - Pregnancy [Unknown]

NARRATIVE: CASE EVENT DATE: 2015
